FAERS Safety Report 22994335 (Version 2)
Quarter: 2023Q4

REPORT INFORMATION
  Report Type: Spontaneous
  Country: US (occurrence: US)
  Receive Date: 20230927
  Receipt Date: 20231025
  Transmission Date: 20240110
  Serious: Yes (Hospitalization, Other)
  Sender: FDA-Public Use
  Company Number: US-BRISTOL-MYERS SQUIBB COMPANY-2023-137009

PATIENT
  Age: 67 Year
  Sex: Female

DRUGS (1)
  1. IDHIFA [Suspect]
     Active Substance: ENASIDENIB MESYLATE
     Indication: Product used for unknown indication
     Dosage: FREQUENCY: TAKE 1 TABLET BY MOUTH ONCE DAILY.
     Route: 048

REACTIONS (4)
  - Infection [Unknown]
  - Sciatica [Unknown]
  - Liver function test increased [Unknown]
  - Urinary retention [Unknown]

NARRATIVE: CASE EVENT DATE: 20230925
